FAERS Safety Report 5072281-5 (Version None)
Quarter: 2006Q3

REPORT INFORMATION
  Report Type: 
  Country: None (occurrence: None)
  Receive Date: 20060807
  Receipt Date: 20060726
  Transmission Date: 20061208
  Serious: Yes (Other)
  Sender: FDA-Public Use
  Company Number: BR-JNJFOC-20060705938

PATIENT
  Age: 5 Year
  Sex: Male
  Weight: 26 kg

DRUGS (1)
  1. HALDOL [Suspect]
     Indication: DRUG USE FOR UNKNOWN INDICATION
     Dosage: CONTENTS OF ONE FLASK, 30 ML OF 2 MG/ML
     Route: 048

REACTIONS (4)
  - ACCIDENTAL EXPOSURE [None]
  - HYPERTONIA [None]
  - MUSCLE SPASMS [None]
  - SOMNOLENCE [None]
